FAERS Safety Report 18366417 (Version 1)
Quarter: 2020Q4

REPORT INFORMATION
  Report Type: Report from Study
  Country: US (occurrence: US)
  Receive Date: 20201009
  Receipt Date: 20201009
  Transmission Date: 20210114
  Serious: No
  Sender: FDA-Public Use
  Company Number: NVSC2020US273419

PATIENT
  Age: 50 Year
  Sex: Female

DRUGS (2)
  1. ENTRESTO [Suspect]
     Active Substance: SACUBITRIL\VALSARTAN
     Indication: CARDIAC FAILURE
     Dosage: 49.51 MG, BID
     Route: 048
     Dates: start: 20200930
  2. ENTRESTO [Suspect]
     Active Substance: SACUBITRIL\VALSARTAN
     Dosage: 24/26MG, BID
     Route: 048

REACTIONS (2)
  - Dizziness [Unknown]
  - Eye pain [Unknown]

NARRATIVE: CASE EVENT DATE: 20200930
